FAERS Safety Report 17145528 (Version 5)
Quarter: 2020Q1

REPORT INFORMATION
  Report Type: Report from Study
  Country: US (occurrence: US)
  Receive Date: 20191212
  Receipt Date: 20200331
  Transmission Date: 20200409
  Serious: Yes (Death, Hospitalization, Other)
  Sender: FDA-Public Use
  Company Number: US-ROCHE-2444955

PATIENT
  Age: 68 Year
  Sex: Female
  Weight: 55 kg

DRUGS (15)
  1. CEFEPIME [Concomitant]
     Active Substance: CEFEPIME HYDROCHLORIDE
     Indication: FEBRILE NEUTROPENIA
  2. ACETAMINOPHEN. [Concomitant]
     Active Substance: ACETAMINOPHEN
     Route: 065
     Dates: start: 20190924
  3. DIPHENHYDRAMINE. [Concomitant]
     Active Substance: DIPHENHYDRAMINE
     Dosage: LAST DOSE 24/SEP/2019
     Route: 065
     Dates: start: 20190924
  4. SODIUM CHLORIDE. [Concomitant]
     Active Substance: SODIUM CHLORIDE
     Dosage: LAST DOSE 25/SEP/2019
     Route: 065
     Dates: start: 20190925
  5. GILTERITINIB [Suspect]
     Active Substance: GILTERITINIB
     Indication: ACUTE MYELOID LEUKAEMIA
     Dosage: LAST DOSE: 25/NOV/2019
     Route: 048
     Dates: start: 20190926, end: 20191023
  6. OXYCODONE [Concomitant]
     Active Substance: OXYCODONE
     Dosage: LAST DOSE 24/SEP/2019
     Route: 065
     Dates: start: 20190924
  7. ATEZOLIZUMAB. [Suspect]
     Active Substance: ATEZOLIZUMAB
     Route: 042
     Dates: start: 20191212, end: 20200110
  8. ALLOPURINOL. [Concomitant]
     Active Substance: ALLOPURINOL
     Route: 065
  9. ATEZOLIZUMAB. [Suspect]
     Active Substance: ATEZOLIZUMAB
     Indication: ACUTE MYELOID LEUKAEMIA
     Route: 042
     Dates: start: 20190926, end: 20191023
  10. POTASSIUM CHLORIDE. [Concomitant]
     Active Substance: POTASSIUM CHLORIDE
     Dosage: LAST DOSE 25/SEP/2019
     Route: 065
     Dates: start: 20190924
  11. LIDOCAINE. [Concomitant]
     Active Substance: LIDOCAINE
     Dosage: LAST DOSE 25/SEP/2019
     Route: 065
     Dates: start: 20190923
  12. HYDROCODONE/ACETAMINOPHEN [Concomitant]
     Active Substance: ACETAMINOPHEN\HYDROCODONE
     Dosage: LAST DOSE ON 23/SEP/2019
     Route: 065
     Dates: start: 20190920
  13. GILTERITINIB [Suspect]
     Active Substance: GILTERITINIB
     Route: 048
     Dates: start: 20191212, end: 20200110
  14. LACTATED RINGERS SOLUTION [Concomitant]
     Active Substance: CALCIUM CHLORIDE\POTASSIUM CHLORIDE\SODIUM CHLORIDE\SODIUM LACTATE
     Dosage: LAST DOSE ON 23/SEP/2019
     Route: 065
     Dates: start: 20190923
  15. METHYLCELLULOSE [Concomitant]
     Active Substance: METHYLCELLULOSES
     Dosage: LAST DOSE 24/SEP/2019
     Route: 065
     Dates: start: 20190923

REACTIONS (6)
  - Hepatitis [Recovering/Resolving]
  - Aspartate aminotransferase increased [Recovering/Resolving]
  - Subdural haematoma [Recovered/Resolved]
  - Hypoxia [Not Recovered/Not Resolved]
  - Cerebrovascular accident [Recovered/Resolved]
  - Bacteraemia [Recovered/Resolved]

NARRATIVE: CASE EVENT DATE: 20190928
